FAERS Safety Report 13047039 (Version 1)
Quarter: 2016Q4

REPORT INFORMATION
  Report Type: Report from Study
  Country: JP (occurrence: JP)
  Receive Date: 20161220
  Receipt Date: 20161220
  Transmission Date: 20170207
  Serious: Yes (Other)
  Sender: FDA-Public Use
  Company Number: JP-DEPOMED, INC.-JP-2016DEP012688

PATIENT
  Age: 24 Year
  Sex: Female
  Weight: 51 kg

DRUGS (28)
  1. OXINORM                            /00045603/ [Concomitant]
     Active Substance: OXYCODONE HYDROCHLORIDE
     Dosage: UNK
     Dates: start: 20160427, end: 20160427
  2. MAGMITT [Concomitant]
     Active Substance: MAGNESIUM OXIDE
     Indication: PROPHYLAXIS
     Dosage: UNK
  3. LUNESTA [Concomitant]
     Active Substance: ESZOPICLONE
     Indication: INSOMNIA
     Dosage: UNK
  4. PREDNISOLONE SODIUM SUCCINATE [Concomitant]
     Active Substance: PREDNISOLONE SODIUM SUCCINATE
     Indication: HAEMATOPOIETIC NEOPLASM
     Dosage: UNK
     Dates: start: 20160503, end: 20160504
  5. OXINORM                            /00045603/ [Concomitant]
     Active Substance: OXYCODONE HYDROCHLORIDE
     Dosage: UNK
     Dates: start: 20160503, end: 20160503
  6. OXINORM                            /00045603/ [Concomitant]
     Active Substance: OXYCODONE HYDROCHLORIDE
     Dosage: UNK
     Dates: start: 20160428, end: 20160428
  7. PREDNISOLONE. [Concomitant]
     Active Substance: PREDNISOLONE
     Indication: HAEMATOPOIETIC NEOPLASM
     Dosage: UNK
     Dates: start: 20160430, end: 20160502
  8. RITUXAN [Concomitant]
     Active Substance: RITUXIMAB
     Indication: HAEMATOPOIETIC NEOPLASM
     Dosage: UNK
     Dates: start: 20160509, end: 20160509
  9. CALONAL [Concomitant]
     Active Substance: ACETAMINOPHEN
     Indication: PROPHYLAXIS
     Dosage: UNK
     Dates: start: 20160509, end: 20160509
  10. NEOMALLERMIN [Concomitant]
     Active Substance: DEXCHLORPHENIRAMINE MALEATE
     Indication: PROPHYLAXIS
     Dosage: UNK
     Dates: start: 20160509, end: 20160509
  11. ETOPOSIDE. [Suspect]
     Active Substance: ETOPOSIDE
     Indication: HAEMATOPOIETIC NEOPLASM
     Dosage: 75 MG, QD
     Dates: start: 20160430, end: 20160503
  12. BACTRIM [Concomitant]
     Active Substance: SULFAMETHOXAZOLE\TRIMETHOPRIM
     Indication: PROPHYLAXIS
     Dosage: UNK
     Dates: start: 20160430
  13. PREDNISOLONE SODIUM SUCCINATE [Concomitant]
     Active Substance: PREDNISOLONE SODIUM SUCCINATE
     Dosage: UNK
     Dates: start: 20160505, end: 20160506
  14. DOXORUBICIN HYDROCHLORIDE. [Suspect]
     Active Substance: DOXORUBICIN HYDROCHLORIDE
     Indication: HAEMATOPOIETIC NEOPLASM
     Dosage: 15 MG, QD
     Dates: start: 20160430, end: 20160503
  15. PREDNISOLONE SODIUM SUCCINATE [Concomitant]
     Active Substance: PREDNISOLONE SODIUM SUCCINATE
     Dosage: UNK
     Dates: start: 20160507, end: 20160508
  16. ENDOXAN                            /00021101/ [Concomitant]
     Active Substance: CYCLOPHOSPHAMIDE
     Indication: HAEMATOPOIETIC NEOPLASM
     Dosage: UNK
     Dates: start: 20160504, end: 20160504
  17. ALOXI [Concomitant]
     Active Substance: PALONOSETRON HYDROCHLORIDE
     Indication: PROPHYLAXIS
     Dosage: UNK
     Dates: start: 20160430, end: 20160430
  18. RASURITEK [Concomitant]
     Active Substance: RASBURICASE
     Indication: PROPHYLAXIS
     Dosage: UNK
     Dates: start: 20160430, end: 20160504
  19. TAPENTADOL HYDROCHLORIDE [Suspect]
     Active Substance: TAPENTADOL HYDROCHLORIDE
     Indication: CANCER PAIN
     Dosage: 25 MG, BID
     Route: 048
     Dates: start: 20160426, end: 20160506
  20. EMEND [Concomitant]
     Active Substance: APREPITANT
     Dosage: UNK
     Dates: start: 20160501, end: 20160504
  21. MEYLON [Concomitant]
     Active Substance: SODIUM BICARBONATE
     Indication: PROPHYLAXIS
     Dosage: UNK
     Dates: start: 20160430, end: 20160502
  22. ANOLEXINON [Concomitant]
     Indication: PROPHYLAXIS
     Dosage: UNK
     Dates: start: 20160427, end: 20160429
  23. EMEND [Concomitant]
     Active Substance: APREPITANT
     Indication: PROPHYLAXIS
     Dosage: UNK
     Dates: start: 20160430, end: 20160430
  24. FERROUS CITRATE NA [Concomitant]
     Active Substance: SODIUM FERROUS CITRATE
     Indication: IRON DEFICIENCY ANAEMIA
     Dosage: UNK
     Dates: start: 20160430
  25. ONCOVIN [Concomitant]
     Active Substance: VINCRISTINE SULFATE
     Indication: HAEMATOPOIETIC NEOPLASM
     Dosage: UNK
     Dates: start: 20160430, end: 20160503
  26. DEXART [Concomitant]
     Active Substance: DEXAMETHASONE SODIUM PHOSPHATE
     Indication: HAEMATOPOIETIC NEOPLASM
     Dosage: UNK
     Dates: start: 20160427, end: 20160429
  27. OXINORM                            /00045603/ [Concomitant]
     Active Substance: OXYCODONE HYDROCHLORIDE
     Indication: CANCER PAIN
     Dosage: UNK
     Dates: start: 20160426, end: 20160426
  28. POLAPREZINC [Concomitant]
     Active Substance: POLAPREZINC
     Indication: PROPHYLAXIS
     Dosage: UNK
     Dates: start: 20160430

REACTIONS (2)
  - Nausea [Recovered/Resolved]
  - Febrile neutropenia [Recovering/Resolving]

NARRATIVE: CASE EVENT DATE: 20160430
